FAERS Safety Report 16882199 (Version 1)
Quarter: 2019Q4

REPORT INFORMATION
  Report Type: Spontaneous
  Country: FR (occurrence: FR)
  Receive Date: 20191003
  Receipt Date: 20191003
  Transmission Date: 20200122
  Serious: Yes (Hospitalization)
  Sender: FDA-Public Use
  Company Number: FR-ELI_LILLY_AND_COMPANY-FR201910000985

PATIENT
  Age: 63 Year
  Sex: Male
  Weight: 91 kg

DRUGS (15)
  1. PERMIXON [Concomitant]
     Active Substance: HERBALS\SAW PALMETTO
  2. METFORMINE [METFORMIN] [Concomitant]
     Active Substance: METFORMIN HYDROCHLORIDE
  3. ALIMTA [Suspect]
     Active Substance: PEMETREXED DISODIUM
     Indication: ADENOCARCINOMA
     Dosage: 1000 MG, CYCLICAL
     Route: 042
     Dates: start: 20190129
  4. BIPRETERAX [INDAPAMIDE;PERINDOPRIL ARGININE] [Concomitant]
     Active Substance: INDAPAMIDE\PERINDOPRIL ARGININE
  5. ALDACTONE [Concomitant]
     Active Substance: SPIRONOLACTONE
  6. MONO TILDIEM [Concomitant]
     Active Substance: DILTIAZEM HYDROCHLORIDE
  7. EZETROL [Concomitant]
     Active Substance: EZETIMIBE
  8. FLECAINE [Concomitant]
     Active Substance: FLECAINIDE
  9. LANSOPRAZOLE. [Concomitant]
     Active Substance: LANSOPRAZOLE
  10. GLIMEPIRIDE. [Concomitant]
     Active Substance: GLIMEPIRIDE
  11. ELISOR [Concomitant]
     Active Substance: PRAVASTATIN SODIUM
  12. LEXOMIL [Concomitant]
     Active Substance: BROMAZEPAM
  13. HYPERIUM [Concomitant]
     Active Substance: RILMENIDINE PHOSPHATE
  14. ELIQUIS [Concomitant]
     Active Substance: APIXABAN
  15. SPECIAFOLDINE [Concomitant]
     Active Substance: FOLIC ACID

REACTIONS (1)
  - Morphoea [Recovering/Resolving]

NARRATIVE: CASE EVENT DATE: 20190721
